FAERS Safety Report 13700856 (Version 1)
Quarter: 2017Q2

REPORT INFORMATION
  Report Type: Spontaneous
  Country: US (occurrence: US)
  Receive Date: 20170628
  Receipt Date: 20170628
  Transmission Date: 20170830
  Serious: Yes (Life-Threatening, Hospitalization, Disabling, Other)
  Sender: FDA-Public Use
  Company Number: None

PATIENT
  Age: 53 Year
  Sex: Male
  Weight: 87.75 kg

DRUGS (13)
  1. TURMERIC [Concomitant]
     Active Substance: HERBALS\TURMERIC
  2. CINNAMON. [Concomitant]
     Active Substance: CINNAMON
  3. OMEPRAZOLE. [Concomitant]
     Active Substance: OMEPRAZOLE
  4. MMJ [Concomitant]
  5. CHLORZOXAZONE. [Concomitant]
     Active Substance: CHLORZOXAZONE
  6. GINGER. [Suspect]
     Active Substance: GINGER
  7. COCONUT OIL [Concomitant]
     Active Substance: COCONUT OIL
  8. BENZODIAZEPINE: CLONAZEPAM [Suspect]
     Active Substance: CLONAZEPAM
     Indication: ANXIETY
     Route: 048
     Dates: start: 20060512, end: 20110517
  9. HYDROXYZINE [Concomitant]
     Active Substance: HYDROXYZINE HYDROCHLORIDE
  10. GALANGAL [Concomitant]
  11. PAIN MEDICATION [Concomitant]
     Active Substance: UNSPECIFIED INGREDIENT
  12. KOMBUCHA [Concomitant]
     Active Substance: DIETARY SUPPLEMENT
  13. ATENOLOL. [Concomitant]
     Active Substance: ATENOLOL

REACTIONS (14)
  - Attention deficit/hyperactivity disorder [None]
  - Pain [None]
  - Dependence [None]
  - Brain injury [None]
  - Cognitive disorder [None]
  - Sleep disorder [None]
  - Insomnia [None]
  - Sleep apnoea syndrome [None]
  - Suicidal ideation [None]
  - Seizure [None]
  - Panic attack [None]
  - Anhedonia [None]
  - Withdrawal syndrome [None]
  - Personality change [None]

NARRATIVE: CASE EVENT DATE: 20110512
